FAERS Safety Report 16651819 (Version 1)
Quarter: 2019Q3

REPORT INFORMATION
  Report Type: Spontaneous
  Country: US (occurrence: US)
  Receive Date: 20190730
  Receipt Date: 20190730
  Transmission Date: 20191004
  Serious: Yes (Hospitalization)
  Sender: FDA-Public Use
  Company Number: None

PATIENT
  Age: 62 Year
  Sex: Female

DRUGS (9)
  1. FOLIC SCID TAB 1 MG [Concomitant]
  2. PROAIR HFA AER [Concomitant]
  3. ORENCIA [Suspect]
     Active Substance: ABATACEPT
     Indication: RHEUMATOID ARTHRITIS
     Dosage: ?          OTHER FREQUENCY:ONCE WEEKLY;?
     Route: 058
     Dates: start: 20170920
  4. TRAZODONE TAB 100 MG [Concomitant]
  5. OMEPRAZOLE CAP 40 MG [Concomitant]
  6. DULOXETINE CAP 60 MG [Concomitant]
  7. CELECOXIB CAP 100 MG [Concomitant]
  8. GABAPENTIN CAP 300 MG [Concomitant]
  9. VITAMIN D CAP 50000 UNIT [Concomitant]

REACTIONS (2)
  - Neck surgery [None]
  - Therapy cessation [None]

NARRATIVE: CASE EVENT DATE: 20190722
